FAERS Safety Report 21583267 (Version 1)
Quarter: 2022Q4

REPORT INFORMATION
  Report Type: Spontaneous
  Country: SA (occurrence: SA)
  Receive Date: 20221111
  Receipt Date: 20221111
  Transmission Date: 20230113
  Serious: Yes (Hospitalization)
  Sender: FDA-Public Use
  Company Number: SA-MYLANLABS-2022M1124863

PATIENT
  Sex: Male

DRUGS (7)
  1. EPINEPHRINE [Suspect]
     Active Substance: EPINEPHRINE
     Indication: Bradycardia neonatal
     Dosage: UNK
     Route: 065
  2. URSODIOL [Suspect]
     Active Substance: URSODIOL
     Indication: Neonatal cholestasis
     Dosage: 30 MILLIGRAM/KILOGRAM, QD
     Route: 065
  3. ALBUMIN HUMAN [Suspect]
     Active Substance: ALBUMIN HUMAN
     Indication: Blood albumin decreased
     Dosage: UNK
     Route: 065
  4. CAFFEINE [Suspect]
     Active Substance: CAFFEINE
     Indication: Infantile apnoea
     Dosage: 5 MILLIGRAM/KILOGRAM, QD
     Route: 065
  5. CAFFEINE [Suspect]
     Active Substance: CAFFEINE
     Indication: Bradycardia neonatal
  6. NITRIC OXIDE [Suspect]
     Active Substance: NITRIC OXIDE
     Indication: Septic shock
     Dosage: UNK
  7. PHENOBARBITAL [Concomitant]
     Active Substance: PHENOBARBITAL
     Indication: Evidence based treatment
     Dosage: UNK
     Route: 065

REACTIONS (1)
  - Drug ineffective [Unknown]
